FAERS Safety Report 5413504-X (Version None)
Quarter: 2007Q3

REPORT INFORMATION
  Report Type: 
  Country: None (occurrence: None)
  Receive Date: 20070814
  Receipt Date: 20070807
  Transmission Date: 20080115
  Serious: Yes (Hospitalization)
  Sender: FDA-Public Use
  Company Number: AR-AMGEN-US238163

PATIENT
  Sex: Male
  Weight: 64 kg

DRUGS (3)
  1. ENBREL [Suspect]
     Indication: PSORIATIC ARTHROPATHY
     Dosage: 25 AND 50 MG INJECTION - 1 EACH ONCE A WEEK
     Route: 058
     Dates: start: 20070205, end: 20070701
  2. NAPROXEN [Concomitant]
     Indication: ANTIINFLAMMATORY THERAPY
  3. LOTRIAL [Concomitant]
     Indication: HYPERTENSION
     Route: 065

REACTIONS (7)
  - BLOOD GLUCOSE DECREASED [None]
  - GASTROINTESTINAL PAIN [None]
  - HAEMATOCHEZIA [None]
  - HYPOTENSION [None]
  - MEDICATION ERROR [None]
  - PNEUMONIA [None]
  - SYNCOPE [None]
